FAERS Safety Report 22049061 (Version 5)
Quarter: 2023Q2

REPORT INFORMATION
  Report Type: Spontaneous
  Country: US (occurrence: US)
  Receive Date: 20230301
  Receipt Date: 20230504
  Transmission Date: 20230721
  Serious: No
  Sender: FDA-Public Use
  Company Number: US-PFIZER INC-PV202200072290

PATIENT
  Age: 67 Year
  Sex: Female
  Weight: 99.79 kg

DRUGS (2)
  1. IBRANCE [Suspect]
     Active Substance: PALBOCICLIB
     Indication: Breast cancer metastatic
     Dosage: 125 MG, ONCE A DAY BY MOUTH FOR 21 DAYS ON AND 7 DAYS OFF
     Route: 048
     Dates: start: 202207
  2. LETROZOLE [Concomitant]
     Active Substance: LETROZOLE
     Indication: Breast cancer metastatic
     Dosage: ONCE A DAY BY MOUTH, IN THE EVENING
     Route: 048
     Dates: start: 202207

REACTIONS (3)
  - Feeling abnormal [Unknown]
  - Abdominal discomfort [Unknown]
  - Product dose omission issue [Unknown]
